FAERS Safety Report 7895815 (Version 7)
Quarter: 2013Q1

REPORT INFORMATION
  Report Type: Spontaneous
  Country: US (occurrence: US)
  Receive Date: 20110412
  Receipt Date: 20130312
  Transmission Date: 20140127
  Serious: Yes (Life-Threatening, Congenital Anomaly, Other)
  Sender: FDA-Public Use
  Company Number: US-PFIZER INC-2011077299

PATIENT
  Sex: Female
  Weight: 4 kg

DRUGS (10)
  1. ZOLOFT [Suspect]
     Dosage: 100 MG, UNK
     Route: 064
     Dates: start: 200909, end: 20101223
  2. AMBIEN [Concomitant]
     Dosage: 5 MG, UNK
     Route: 064
  3. PRENATAL VITAMINS [Concomitant]
     Dosage: UNK
     Route: 064
  4. FOLIC ACID [Concomitant]
     Dosage: UNK
     Route: 064
  5. TYLENOL [Concomitant]
     Dosage: UNK
     Route: 064
  6. ADVIL [Concomitant]
     Dosage: UNK
     Route: 064
  7. ZOLPIDEM [Concomitant]
     Dosage: 10 MG, 1X/DAY BEFORE BED TIME
     Route: 064
     Dates: start: 20100831
  8. ZOLPIDEM [Concomitant]
     Dosage: 2.5 MG, 1X/DAY (5 MG HALF STRENGTH)
     Route: 064
     Dates: start: 20100911
  9. SERTRALINE [Concomitant]
     Dosage: 50 MG, 1X/DAY
     Route: 064
     Dates: start: 20090916
  10. SERTRALINE [Concomitant]
     Dosage: 100 MG, 1X/DAY
     Route: 064
     Dates: start: 20100116

REACTIONS (13)
  - Foetal exposure during pregnancy [Unknown]
  - Congenital anomaly [Unknown]
  - Patent ductus arteriosus [Recovered/Resolved]
  - Atrial septal defect [Unknown]
  - Ventricular septal defect [Unknown]
  - Cardiac failure congestive [Recovering/Resolving]
  - Tricuspid valve incompetence [Unknown]
  - Gross motor delay [Not Recovered/Not Resolved]
  - Marfan^s syndrome [Unknown]
  - Pulmonary valve incompetence [Unknown]
  - Mitral valve incompetence [Unknown]
  - Cardiomegaly [Recovering/Resolving]
  - Gastrooesophageal reflux disease [Recovered/Resolved]
